FAERS Safety Report 25586990 (Version 1)
Quarter: 2025Q3

REPORT INFORMATION
  Report Type: Spontaneous
  Country: US (occurrence: US)
  Receive Date: 20250721
  Receipt Date: 20250721
  Transmission Date: 20251020
  Serious: No
  Sender: Phathom Pharmaceuticals
  Company Number: US-PHATHOM PHARMACEUTICALS INC.-2025PHT01496

PATIENT
  Sex: Male

DRUGS (4)
  1. VOQUEZNA [Suspect]
     Active Substance: VONOPRAZAN FUMARATE
     Dosage: 20 MG, 1X/DAY
     Route: 048
     Dates: start: 20250514, end: 2025
  2. ATORVASTATIN [Concomitant]
     Active Substance: ATORVASTATIN
  3. TADALAFIL [Concomitant]
     Active Substance: TADALAFIL
  4. TELMISARTAN [Concomitant]
     Active Substance: TELMISARTAN

REACTIONS (2)
  - Urinary tract disorder [Recovering/Resolving]
  - Urinary retention [Recovering/Resolving]

NARRATIVE: CASE EVENT DATE: 20250101
